FAERS Safety Report 15675632 (Version 6)
Quarter: 2019Q3

REPORT INFORMATION
  Report Type: Report from Study
  Country: BR (occurrence: BR)
  Receive Date: 20181130
  Receipt Date: 20190916
  Transmission Date: 20191004
  Serious: Yes (Hospitalization, Disabling, Other)
  Sender: FDA-Public Use
  Company Number: BR-SA-2018SA287571

PATIENT
  Age: 35 Year
  Sex: Female

DRUGS (2)
  1. ALEMTUZUMAB [Suspect]
     Active Substance: ALEMTUZUMAB
     Indication: MULTIPLE SCLEROSIS
     Dosage: 3 DF
     Route: 041
     Dates: start: 201801, end: 20180105
  2. ALEMTUZUMAB [Suspect]
     Active Substance: ALEMTUZUMAB
     Dosage: 3 DF
     Route: 041
     Dates: start: 20170109, end: 201701

REACTIONS (18)
  - Haemorrhage [Recovering/Resolving]
  - Autoimmune thyroiditis [Recovering/Resolving]
  - Skin discolouration [Recovering/Resolving]
  - Condition aggravated [Not Recovered/Not Resolved]
  - Acquired haemophilia [Recovering/Resolving]
  - Erythema nodosum [Recovering/Resolving]
  - Alopecia [Not Recovered/Not Resolved]
  - Malaise [Unknown]
  - Coagulopathy [Recovering/Resolving]
  - Anaemia [Recovering/Resolving]
  - Haematoma [Recovering/Resolving]
  - Thyroiditis [Unknown]
  - Peripheral swelling [Recovering/Resolving]
  - Blood pressure fluctuation [Recovering/Resolving]
  - Pyrexia [Recovering/Resolving]
  - Pain [Recovering/Resolving]
  - Gait disturbance [Recovering/Resolving]
  - Hospitalisation [Unknown]

NARRATIVE: CASE EVENT DATE: 201808
